FAERS Safety Report 4571182-6 (Version None)
Quarter: 2005Q1

REPORT INFORMATION
  Report Type: 
  Country: None (occurrence: None)
  Receive Date: 20050202
  Receipt Date: 20050118
  Transmission Date: 20050727
  Serious: Yes (Hospitalization)
  Sender: FDA-Public Use
  Company Number: FR_050105645

PATIENT
  Age: 50 Year
  Sex: Male

DRUGS (3)
  1. GEMZAR [Suspect]
     Indication: NON-SMALL CELL LUNG CANCER
     Dosage: 1000 MG/M2/2 OTHER
     Route: 042
     Dates: start: 20040801
  2. CISPLATIN [Concomitant]
  3. RADIATION THERAPY [Concomitant]

REACTIONS (4)
  - ABDOMINAL PAIN [None]
  - HEPATITIS [None]
  - HEPATOCELLULAR DAMAGE [None]
  - RADIATION INJURY [None]
